FAERS Safety Report 4801201-0 (Version None)
Quarter: 2005Q4

REPORT INFORMATION
  Report Type: 
  Country: None (occurrence: None)
  Receive Date: 20051011
  Receipt Date: 20050928
  Transmission Date: 20060501
  Serious: Yes (Disabling)
  Sender: FDA-Public Use
  Company Number: 2005136296

PATIENT
  Age: 57 Year
  Sex: Male

DRUGS (3)
  1. LYRICA [Suspect]
     Indication: PAIN
     Dosage: 400 MG (200 MG, 2 IN 1 D), ORAL
     Route: 048
     Dates: start: 20050120
  2. TRAMADOL HCL [Concomitant]
  3. CLONIDINE [Concomitant]

REACTIONS (1)
  - OPTIC ISCHAEMIC NEUROPATHY [None]
